FAERS Safety Report 24888826 (Version 1)
Quarter: 2025Q1

REPORT INFORMATION
  Report Type: Spontaneous
  Country: IN (occurrence: IN)
  Receive Date: 20250127
  Receipt Date: 20250127
  Transmission Date: 20250408
  Serious: Yes (Hospitalization, Other)
  Sender: Unknown Manufacturer
  Company Number: IN-KOANAAP-SML-IN-2025-00047

PATIENT
  Age: 62 Year
  Sex: Female

DRUGS (4)
  1. CYCLOPHOSPHAMIDE [Suspect]
     Active Substance: CYCLOPHOSPHAMIDE
     Indication: Hypereosinophilic syndrome
  2. IMATINIB [Suspect]
     Active Substance: IMATINIB
     Indication: Hypereosinophilic syndrome
  3. HYDROXYUREA [Suspect]
     Active Substance: HYDROXYUREA
     Indication: Hypereosinophilic syndrome
  4. METHYLPREDNISOLONE [Suspect]
     Active Substance: METHYLPREDNISOLONE
     Indication: Hypereosinophilic syndrome
     Route: 042

REACTIONS (3)
  - Drug ineffective [Unknown]
  - Pneumonia aspiration [Unknown]
  - Disease progression [Unknown]
